FAERS Safety Report 4404192-X (Version None)
Quarter: 2004Q3

REPORT INFORMATION
  Report Type: 
  Country: None (occurrence: None)
  Receive Date: 20040719
  Receipt Date: 20040708
  Transmission Date: 20050211
  Serious: Yes (Hospitalization)
  Sender: FDA-Public Use
  Company Number: 2004IM000266

PATIENT
  Age: 63 Year
  Sex: Male

DRUGS (3)
  1. ADVAFERON (A643_INTERFERON ALFACON-1) [Suspect]
     Indication: HEPATITIS C
     Dosage: 18 MU; QD; SUBCUTANEOUS
     Route: 058
     Dates: start: 20020507
  2. CETIRIZINE HCL [Concomitant]
  3. GLICLAZIDE [Concomitant]

REACTIONS (7)
  - ASTHENIA [None]
  - DECREASED APPETITE [None]
  - EATING DISORDER [None]
  - ENTEROBACTER INFECTION [None]
  - PNEUMONIA BACTERIAL [None]
  - PYREXIA [None]
  - REFUSAL OF TREATMENT BY PATIENT [None]
